FAERS Safety Report 9959385 (Version 1)
Quarter: 2014Q1

REPORT INFORMATION
  Report Type: Spontaneous
  Country: US (occurrence: None)
  Receive Date: 20140227
  Receipt Date: 20140227
  Transmission Date: 20141002
  Serious: Yes (Hospitalization)
  Sender: FDA-Public Use
  Company Number: UTC-044976

PATIENT
  Age: 46 Year
  Sex: Female
  Weight: 46.09 kg

DRUGS (3)
  1. TYVASO (6 MICROGRAM, AEROSOL FOR INHALATION) (TREPROSTINIL SODIUM) [Suspect]
     Indication: PULMONARY ARTERIAL HYPERTENSION
     Dosage: 18-54 MCG (4 IN 1 D), INHALATION
     Route: 055
     Dates: start: 20131021
  2. COUMADIN (WARFARIN) [Concomitant]
  3. SILDENAFIL CITRATE [Concomitant]

REACTIONS (2)
  - Pulmonary oedema [None]
  - Therapy cessation [None]
